FAERS Safety Report 11456581 (Version 2)
Quarter: 2015Q3

REPORT INFORMATION
  Report Type: Spontaneous
  Country: US (occurrence: US)
  Receive Date: 20150903
  Receipt Date: 20150915
  Transmission Date: 20151125
  Serious: No
  Sender: FDA-Public Use
  Company Number: US-009507513-1509USA001135

PATIENT
  Sex: Female

DRUGS (1)
  1. NEXPLANON [Suspect]
     Active Substance: ETONOGESTREL
     Dosage: 68 MG, 1 ROD FOR THREE YEARS
     Route: 059

REACTIONS (3)
  - Haemorrhage [Unknown]
  - Device breakage [Recovered/Resolved]
  - Vaginal haemorrhage [Unknown]
